FAERS Safety Report 6573545-6 (Version None)
Quarter: 2010Q1

REPORT INFORMATION
  Report Type: 
  Country: None (occurrence: None)
  Receive Date: 20100208
  Receipt Date: 20100127
  Transmission Date: 20100710
  Serious: Yes (Other)
  Sender: FDA-Public Use
  Company Number: BE-JNJFOC-20100200260

PATIENT

DRUGS (2)
  1. REMICADE [Suspect]
     Indication: POUCHITIS
     Route: 042
  2. REMICADE [Suspect]
     Dosage: INFUSION AT WEEKS 0, 2, 6
     Route: 042

REACTIONS (2)
  - DRUG INEFFECTIVE [None]
  - ILEOSTOMY [None]
